FAERS Safety Report 4599383-1 (Version None)
Quarter: 2005Q1

REPORT INFORMATION
  Report Type: 
  Country: None (occurrence: None)
  Receive Date: 20050302
  Receipt Date: 20050302
  Transmission Date: 20050727
  Serious: Yes (Other)
  Sender: FDA-Public Use
  Company Number: None

PATIENT
  Sex: Male
  Weight: 74 kg

DRUGS (1)
  1. PACLITAXEL [Suspect]
     Indication: NON-SMALL CELL LUNG CANCER
     Dosage: 117 MG IV Q WEEK
     Route: 042
     Dates: start: 20050201, end: 20050301

REACTIONS (2)
  - DYSPNOEA [None]
  - MICTURITION URGENCY [None]
